FAERS Safety Report 18527537 (Version 1)
Quarter: 2020Q4

REPORT INFORMATION
  Report Type: Spontaneous
  Country: FI (occurrence: FI)
  Receive Date: 20201120
  Receipt Date: 20201120
  Transmission Date: 20210114
  Serious: Yes (Hospitalization, Other)
  Sender: FDA-Public Use
  Company Number: FI-MYLANLABS-2020M1094730

PATIENT
  Sex: Male

DRUGS (1)
  1. OLANZAPINE. [Suspect]
     Active Substance: OLANZAPINE
     Indication: SCHIZOPHRENIA
     Dosage: UNK
     Route: 048
     Dates: start: 202005, end: 202005

REACTIONS (3)
  - Psychotic disorder [Recovered/Resolved]
  - Therapeutic product effect incomplete [Unknown]
  - Catatonia [Recovered/Resolved]

NARRATIVE: CASE EVENT DATE: 202005
